FAERS Safety Report 16714165 (Version 1)
Quarter: 2019Q3

REPORT INFORMATION
  Report Type: Spontaneous
  Country: US (occurrence: US)
  Receive Date: 20190819
  Receipt Date: 20190819
  Transmission Date: 20191004
  Serious: No
  Sender: FDA-Public Use
  Company Number: US-ASTRAZENECA-2019SF14670

PATIENT
  Sex: Male
  Weight: 136.1 kg

DRUGS (5)
  1. ALTACE [Concomitant]
     Active Substance: RAMIPRIL
     Indication: RENAL DISORDER
     Route: 048
  2. METOPROLOL SUCCINATE XL [Suspect]
     Active Substance: METOPROLOL SUCCINATE
     Indication: MYOCARDIAL INFARCTION
     Route: 048
  3. PENTASA [Concomitant]
     Active Substance: MESALAMINE
     Indication: CROHN^S DISEASE
     Route: 048
  4. BRILINTA [Suspect]
     Active Substance: TICAGRELOR
     Indication: STENT PLACEMENT
     Route: 048
     Dates: start: 20190403
  5. ASPIRIN. [Concomitant]
     Active Substance: ASPIRIN
     Route: 048

REACTIONS (6)
  - Haemorrhoids [Not Recovered/Not Resolved]
  - Nephrolithiasis [Unknown]
  - Type 2 diabetes mellitus [Not Recovered/Not Resolved]
  - Varicose vein [Not Recovered/Not Resolved]
  - Blood cholesterol increased [Unknown]
  - Impaired healing [Unknown]
